FAERS Safety Report 18796632 (Version 1)
Quarter: 2021Q1

REPORT INFORMATION
  Report Type: Report from Study
  Country: BE (occurrence: BE)
  Receive Date: 20210127
  Receipt Date: 20210127
  Transmission Date: 20210419
  Serious: Yes (Other)
  Sender: FDA-Public Use
  Company Number: BE-INCYTE CORPORATION-2019IN005531

PATIENT

DRUGS (3)
  1. SUPRADYN [ASCORBIC ACID;BIOTIN;CALCIUM;CALCIUM ASCORBATE;CALCIUM CARBO [Concomitant]
     Indication: SUPPORTIVE CARE
     Dosage: UNK
     Route: 065
     Dates: end: 2019
  2. JAKAVI [Suspect]
     Active Substance: RUXOLITINIB
     Indication: POLYCYTHAEMIA VERA
     Dosage: 10 UNK
     Route: 048
     Dates: start: 20190129, end: 201907
  3. MISTLETOE [Concomitant]
     Active Substance: VISCUM ALBUM FRUITING TOP
     Indication: CARDIOVASCULAR EVENT PROPHYLAXIS
     Dosage: UNK (DROPS)
     Route: 065

REACTIONS (4)
  - Nasopharyngitis [Recovered/Resolved]
  - Fall [Recovered/Resolved]
  - Arterial haemorrhage [Not Recovered/Not Resolved]
  - Dysuria [Recovered/Resolved]

NARRATIVE: CASE EVENT DATE: 20190131
